FAERS Safety Report 19886627 (Version 1)
Quarter: 2021Q3

REPORT INFORMATION
  Report Type: Report from Study
  Country: CN (occurrence: CN)
  Receive Date: 20210927
  Receipt Date: 20210927
  Transmission Date: 20211014
  Serious: Yes (Death)
  Sender: FDA-Public Use
  Company Number: CN-PFIZER INC-202101237802

PATIENT
  Age: 73 Year
  Sex: Male

DRUGS (11)
  1. TOCILIZUMAB. [Suspect]
     Active Substance: TOCILIZUMAB
     Indication: COVID-19
     Dosage: 600 MG, SINGLE
     Dates: start: 20200308, end: 20200308
  2. TIGECYCLINE. [Suspect]
     Active Substance: TIGECYCLINE
     Indication: COVID-19
     Dosage: 100 MG, 2X/DAY
     Dates: start: 202002, end: 2020
  3. IMIPENEM [Suspect]
     Active Substance: IMIPENEM
     Indication: COVID-19
     Dosage: 1 G, 2X/DAY
     Dates: start: 202002, end: 2020
  4. RIBAVIRIN. [Suspect]
     Active Substance: RIBAVIRIN
     Indication: COVID-19
     Dosage: 0.5 G, 1X/DAY
     Dates: start: 202002, end: 2020
  5. METHYLPREDNISOLONE SODIUM SUCCINATE. [Suspect]
     Active Substance: METHYLPREDNISOLONE SODIUM SUCCINATE
     Indication: COVID-19
     Dosage: 40 MG, 2X/DAY
     Dates: start: 202002, end: 2020
  6. HUMAN ALBUMIN [Suspect]
     Active Substance: ALBUMIN HUMAN
     Indication: COVID-19
     Dosage: 10 G, 1X/DAY
     Dates: start: 202002, end: 2020
  7. VORICONAZOLE. [Suspect]
     Active Substance: VORICONAZOLE
     Indication: COVID-19
     Dosage: 0.2 G, 2X/DAY
     Dates: start: 202002, end: 2020
  8. HUMAN IMMUNOGLOBULIN (IMMUNOGLOBULIN HUMAN NORMAL) [Suspect]
     Active Substance: HUMAN IMMUNOGLOBULIN G
     Indication: COVID-19
     Dosage: 10 G, 1X/DAY
     Dates: start: 202002, end: 2020
  9. THYMALFASIN [Suspect]
     Active Substance: THYMALFASIN
     Indication: COVID-19
     Dosage: 1.6 MG, WEEKLY
     Dates: start: 202002, end: 2020
  10. CASPOFUNGIN [Suspect]
     Active Substance: CASPOFUNGIN
     Indication: COVID-19
     Dosage: 50 MG, 1X/DAY
     Dates: start: 202002, end: 2020
  11. VANCOMYCIN [Suspect]
     Active Substance: VANCOMYCIN
     Indication: COVID-19
     Dosage: 0.5 G, 2X/DAY
     Dates: start: 202002, end: 2020

REACTIONS (1)
  - Drug ineffective [Fatal]

NARRATIVE: CASE EVENT DATE: 2020
